FAERS Safety Report 15298726 (Version 2)
Quarter: 2018Q3

REPORT INFORMATION
  Report Type: Report from Study
  Country: None (occurrence: GB)
  Receive Date: 20180820
  Receipt Date: 20180824
  Transmission Date: 20181010
  Serious: No
  Sender: FDA-Public Use
  Company Number: GB-ABBVIE-18S-167-2444340-00

PATIENT
  Sex: Female

DRUGS (1)
  1. DUODOPA [Suspect]
     Active Substance: CARBIDOPA\LEVODOPA
     Indication: PARKINSON^S DISEASE
     Dosage: 1 CASSETTE DAILY
     Route: 050

REACTIONS (10)
  - Mobility decreased [Unknown]
  - Malaise [Unknown]
  - Drug effect incomplete [Not Recovered/Not Resolved]
  - Stoma site discharge [Unknown]
  - Condition aggravated [Unknown]
  - Musculoskeletal stiffness [Unknown]
  - Hallucination [Unknown]
  - Stoma site infection [Unknown]
  - Sluggishness [Unknown]
  - On and off phenomenon [Unknown]
